FAERS Safety Report 6491367-1 (Version None)
Quarter: 2009Q4

REPORT INFORMATION
  Report Type: 
  Country: None (occurrence: None)
  Receive Date: 20091211
  Receipt Date: 20091027
  Transmission Date: 20100525
  Serious: Yes (Hospitalization)
  Sender: FDA-Public Use
  Company Number: PHHY2009FR47684

PATIENT
  Sex: Female

DRUGS (7)
  1. LOGROTON [Suspect]
     Indication: HYPERTENSION
     Dosage: UNK
     Route: 048
     Dates: end: 20090716
  2. COZAAR [Suspect]
     Indication: HYPERTENSION
     Dosage: 50 MG, ONCE IN A DAY
     Route: 048
     Dates: end: 20090716
  3. ALEPSAL [Concomitant]
     Route: 048
  4. DEPAKENE [Concomitant]
     Route: 048
  5. SERMION [Concomitant]
     Route: 048
  6. VASTAREL [Concomitant]
     Route: 048
  7. LEVOTHYROXINE SODIUM [Concomitant]
     Route: 048

REACTIONS (5)
  - GENERAL PHYSICAL HEALTH DETERIORATION [None]
  - HYPERTROPHIC CARDIOMYOPATHY [None]
  - HYPOKALAEMIA [None]
  - HYPONATRAEMIA [None]
  - SOMNOLENCE [None]
